FAERS Safety Report 9742637 (Version 1)
Quarter: 2013Q4

REPORT INFORMATION
  Report Type: Spontaneous
  Country: US (occurrence: US)
  Receive Date: 20131210
  Receipt Date: 20131210
  Transmission Date: 20140711
  Serious: No
  Sender: FDA-Public Use
  Company Number: US-GILEAD-2009-0025249

PATIENT
  Age: 73 Year
  Sex: Male

DRUGS (14)
  1. LETAIRIS [Suspect]
     Indication: PULMONARY ARTERIAL HYPERTENSION
     Route: 048
     Dates: start: 20090506
  2. ASPIRIN [Concomitant]
  3. FISH OIL [Concomitant]
  4. TRICOR [Concomitant]
  5. NIASPAN [Concomitant]
  6. WARFARIN [Concomitant]
  7. SPIRONOLACTONE [Concomitant]
  8. DIGOXIN [Concomitant]
  9. CARVEDIOL [Concomitant]
  10. METFORMIN [Concomitant]
  11. GLIPIZIDE [Concomitant]
  12. STROVITE [Concomitant]
  13. FUROSEMIDE [Concomitant]
  14. CRESTOR [Concomitant]

REACTIONS (1)
  - Red blood cell count decreased [Not Recovered/Not Resolved]
